FAERS Safety Report 12311535 (Version 2)
Quarter: 2016Q3

REPORT INFORMATION
  Report Type: Spontaneous
  Country: US (occurrence: US)
  Receive Date: 20160427
  Receipt Date: 20160705
  Transmission Date: 20161109
  Serious: Yes (Hospitalization)
  Sender: FDA-Public Use
  Company Number: US-BAYER-2016-080830

PATIENT
  Age: 28 Year
  Sex: Female

DRUGS (1)
  1. MIRENA [Suspect]
     Active Substance: LEVONORGESTREL
     Indication: CONTRACEPTION
     Dosage: 20 MCG/24HR, CONT
     Route: 015
     Dates: start: 20150915, end: 20160303

REACTIONS (5)
  - Device difficult to use [None]
  - Complication of device removal [None]
  - Device breakage [None]
  - Device expulsion [None]
  - Pelvic pain [None]

NARRATIVE: CASE EVENT DATE: 20160303
